FAERS Safety Report 6835245-4 (Version None)
Quarter: 2010Q3

REPORT INFORMATION
  Report Type: 
  Country: None (occurrence: None)
  Receive Date: 20100713
  Receipt Date: 20100630
  Transmission Date: 20110219
  Serious: Yes (Hospitalization)
  Sender: FDA-Public Use
  Company Number: US-ELI_LILLY_AND_COMPANY-US201003007071

PATIENT
  Sex: Male
  Weight: 94.785 kg

DRUGS (19)
  1. PEMETREXED [Suspect]
     Indication: NON-SMALL CELL LUNG CANCER
     Dosage: 500 MG/M2, OTHER
     Route: 042
     Dates: start: 20100202
  2. PEMETREXED [Suspect]
     Dosage: 375 MG/M2, UNK
  3. CARBOPLATIN [Suspect]
     Indication: NON-SMALL CELL LUNG CANCER
     Dosage: 6 D/F, OTHER
     Route: 042
     Dates: start: 20100202
  4. CARBOPLATIN [Suspect]
     Dosage: 4.5 D/F, UNK
  5. BEVACIZUMAB [Suspect]
     Indication: NON-SMALL CELL LUNG CANCER
     Dosage: 15 MG/KG, OTHER
     Route: 042
     Dates: start: 20100202
  6. SIMVASTATIN [Concomitant]
     Indication: HYPERCHOLESTEROLAEMIA
     Dates: start: 19920101
  7. DILTIAZEM [Concomitant]
     Indication: HYPERTENSION
     Dates: start: 19920101
  8. PRILOSEC [Concomitant]
     Indication: GASTROOESOPHAGEAL REFLUX DISEASE
     Dates: start: 20050101
  9. ALLOPURINOL [Concomitant]
     Indication: PROPHYLAXIS
     Dates: start: 19950101
  10. FLOMAX [Concomitant]
     Indication: BENIGN PROSTATIC HYPERPLASIA
     Dates: start: 20091201
  11. FOLIC ACID [Concomitant]
     Indication: PROPHYLAXIS
     Dates: start: 20100121
  12. VIT B12 [Concomitant]
     Indication: PROPHYLAXIS
     Dates: start: 20100120
  13. IRON [Concomitant]
     Indication: ANAEMIA
     Dates: start: 20091230
  14. POTASSIUM GLUCONATE TAB [Concomitant]
     Indication: SUPPLEMENTATION THERAPY
     Dates: start: 20090101
  15. SAM-E [Concomitant]
     Indication: SUPPLEMENTATION THERAPY
     Dates: start: 20050101
  16. MEGACE [Concomitant]
     Indication: DECREASED APPETITE
     Dates: start: 20100129
  17. SENOKOT [Concomitant]
     Indication: CONSTIPATION
     Dates: start: 20100223
  18. ATENOLOL [Concomitant]
     Indication: HYPERTENSION
     Dates: start: 20100213
  19. CODEINE W/GUAIFENESIN [Concomitant]
     Indication: COUGH
     Dates: start: 20100309

REACTIONS (1)
  - DEHYDRATION [None]
